FAERS Safety Report 5040758-4 (Version None)
Quarter: 2006Q2

REPORT INFORMATION
  Report Type: 
  Country: None (occurrence: None)
  Receive Date: 20060601
  Receipt Date: 20060306
  Transmission Date: 20061013
  Serious: No
  Sender: FDA-Public Use
  Company Number: 2006PV009721

PATIENT
  Age: 64 Year
  Sex: Male
  Weight: 149.687 kg

DRUGS (3)
  1. BYETTA INJECITON (0.25 MG/ML) [Suspect]
     Indication: DIABETES MELLITUS NON-INSULIN-DEPENDENT
     Dosage: 10 MCG; 5 MCG: BID; SC
     Route: 058
     Dates: start: 20051201, end: 20060101
  2. BYETTA INJECITON (0.25 MG/ML) [Suspect]
     Indication: DIABETES MELLITUS NON-INSULIN-DEPENDENT
     Dosage: 10 MCG; 5 MCG: BID; SC
     Route: 058
     Dates: start: 20060101
  3. ASPIRIN [Concomitant]

REACTIONS (3)
  - INJECTION SITE BRUISING [None]
  - INJECTION SITE HAEMORRHAGE [None]
  - WEIGHT DECREASED [None]
